FAERS Safety Report 8133112 (Version 6)
Quarter: 2016Q3

REPORT INFORMATION
  Report Type: Report from Study
  Country: US (occurrence: US)
  Receive Date: 20110913
  Receipt Date: 20160912
  Transmission Date: 20161109
  Serious: Yes (Other)
  Sender: FDA-Public Use
  Company Number: US-ROCHE-801424

PATIENT
  Sex: Female

DRUGS (7)
  1. DOCETAXEL. [Suspect]
     Active Substance: DOCETAXEL
     Dosage: DAY 1
     Route: 065
  2. DOCETAXEL. [Suspect]
     Active Substance: DOCETAXEL
     Indication: BREAST CANCER
     Dosage: DAY 1
     Route: 065
  3. DOXORUBICIN [Suspect]
     Active Substance: DOXORUBICIN
     Indication: BREAST CANCER
     Route: 065
  4. CAPECITABINE. [Suspect]
     Active Substance: CAPECITABINE
     Indication: BREAST CANCER
     Dosage: DAYS 1 -14
     Route: 065
  5. BEVACIZUMAB [Suspect]
     Active Substance: BEVACIZUMAB
     Indication: BREAST CANCER
     Route: 042
  6. CYCLOPHOSPHAMIDE. [Suspect]
     Active Substance: CYCLOPHOSPHAMIDE
     Indication: BREAST CANCER
     Dosage: 4 CYCLES
     Route: 065
  7. GEMCITABINE [Suspect]
     Active Substance: GEMCITABINE\GEMCITABINE HYDROCHLORIDE
     Indication: BREAST CANCER
     Dosage: DAYS 1 AND 8
     Route: 065

REACTIONS (74)
  - Left ventricular dysfunction [Unknown]
  - Lower gastrointestinal haemorrhage [Unknown]
  - Cough [Unknown]
  - Dysphagia [Unknown]
  - Gastrointestinal disorder [Unknown]
  - Small intestinal obstruction [Unknown]
  - Pain [Unknown]
  - Vomiting [Unknown]
  - Peripheral sensory neuropathy [Unknown]
  - Anaphylactic reaction [Unknown]
  - Vascular access complication [Unknown]
  - Myalgia [Unknown]
  - Peripheral motor neuropathy [Unknown]
  - Anal haemorrhage [Unknown]
  - Dyspepsia [Unknown]
  - Dyspnoea [Unknown]
  - Lung infection [Unknown]
  - White blood cell count decreased [Unknown]
  - Hypoxia [Unknown]
  - Cardiac arrest [Unknown]
  - Large intestinal haemorrhage [Unknown]
  - Palmar-plantar erythrodysaesthesia syndrome [Unknown]
  - Wound infection [Unknown]
  - Cystitis [Unknown]
  - Aspartate aminotransferase increased [Unknown]
  - Platelet count decreased [Unknown]
  - Dehydration [Unknown]
  - Proteinuria [Unknown]
  - Gastritis [Unknown]
  - Proctitis [Unknown]
  - Oedema peripheral [Unknown]
  - Facial pain [Unknown]
  - Leukopenia [Unknown]
  - Neutropenia [Unknown]
  - Bone pain [Unknown]
  - Constipation [Unknown]
  - Stomatitis [Unknown]
  - Pyrexia [Unknown]
  - Alanine aminotransferase increased [Unknown]
  - Pneumonitis [Unknown]
  - Erythema multiforme [Unknown]
  - Ear pain [Unknown]
  - Oesophagitis [Unknown]
  - Small intestinal perforation [Unknown]
  - Hypertension [Unknown]
  - Fatigue [Unknown]
  - Mucosal inflammation [Unknown]
  - Febrile neutropenia [Unknown]
  - Abdominal pain [Unknown]
  - Colitis [Unknown]
  - Colonic fistula [Unknown]
  - Large intestine perforation [Unknown]
  - Duodenal ulcer [Unknown]
  - Haemorrhoids [Unknown]
  - Face oedema [Unknown]
  - Diarrhoea [Unknown]
  - Nausea [Unknown]
  - Non-cardiac chest pain [Unknown]
  - Sepsis [Unknown]
  - Pulmonary haemorrhage [Unknown]
  - Peripheral ischaemia [Unknown]
  - Rash [Unknown]
  - Embolism [Unknown]
  - Headache [Unknown]
  - Anaemia [Unknown]
  - Cardiac failure [Unknown]
  - Myocardial infarction [Unknown]
  - Arthralgia [Unknown]
  - Stevens-Johnson syndrome [Unknown]
  - Cardiac disorder [Unknown]
  - Proctalgia [Unknown]
  - Ascites [Unknown]
  - Ileus [Unknown]
  - Influenza like illness [Unknown]
